FAERS Safety Report 5075819-7 (Version None)
Quarter: 2006Q3

REPORT INFORMATION
  Report Type: 
  Country: None (occurrence: None)
  Receive Date: 20060809
  Receipt Date: 20060804
  Transmission Date: 20061208
  Serious: Yes (Other)
  Sender: FDA-Public Use
  Company Number: NL-GLAXOSMITHKLINE-B0433309A

PATIENT
  Age: 7 Year
  Sex: Male

DRUGS (1)
  1. FLUTICASONE PROPIONATE (INHALED) [Suspect]
     Indication: DRUG USE FOR UNKNOWN INDICATION
     Route: 055

REACTIONS (1)
  - PSEUDOCROUP [None]
